FAERS Safety Report 7587281-0 (Version None)
Quarter: 2011Q3

REPORT INFORMATION
  Report Type: 
  Country: None (occurrence: None)
  Receive Date: 20110701
  Receipt Date: 20110620
  Transmission Date: 20111222
  Serious: Yes (Other)
  Sender: FDA-Public Use
  Company Number: US-ELI_LILLY_AND_COMPANY-US201106006567

PATIENT
  Sex: Male

DRUGS (2)
  1. HUMAN INSULIN [Suspect]
     Indication: DIABETES MELLITUS
  2. NOVOLIN 70/30 [Concomitant]

REACTIONS (3)
  - LEG AMPUTATION [None]
  - DEPRESSED MOOD [None]
  - FRUSTRATION [None]
